FAERS Safety Report 4587020-1 (Version None)
Quarter: 2005Q1

REPORT INFORMATION
  Report Type: 
  Country: None (occurrence: None)
  Receive Date: 20050214
  Receipt Date: 20050204
  Transmission Date: 20050727
  Serious: Yes (Life-Threatening, Hospitalization)
  Sender: FDA-Public Use
  Company Number: 2005AP00970

PATIENT
  Age: 37 Year
  Sex: Male

DRUGS (1)
  1. XYLOCAINE W/ EPINEPHRINE [Suspect]
     Indication: ANAESTHESIA
     Dates: start: 20030729, end: 20030729

REACTIONS (4)
  - DYSPNOEA [None]
  - HYPERSENSITIVITY [None]
  - LOSS OF CONSCIOUSNESS [None]
  - PO2 DECREASED [None]
